FAERS Safety Report 5164834-0 (Version None)
Quarter: 2006Q4

REPORT INFORMATION
  Report Type: 
  Country: None (occurrence: None)
  Receive Date: 20061124
  Receipt Date: 20061113
  Transmission Date: 20070319
  Serious: Yes (Other)
  Sender: FDA-Public Use
  Company Number: 149868ISR

PATIENT
  Age: 31 Year
  Sex: Female

DRUGS (3)
  1. SERTRALINE HYDROCHLORIDE [Suspect]
     Indication: PANIC DISORDER
     Dosage: SEE IMAGE
  2. PAROXETINE HCL [Suspect]
     Indication: PANIC DISORDER
     Dosage: 20 MG (20 MG, 1 IN 1 D)
  3. ALPRAZOLAM [Suspect]
     Indication: PANIC DISORDER
     Dosage: SEE IMAGE

REACTIONS (8)
  - AGITATION [None]
  - ALCOHOL POISONING [None]
  - DEPRESSION [None]
  - HOMICIDE [None]
  - MULTIPLE DRUG OVERDOSE INTENTIONAL [None]
  - RESTLESSNESS [None]
  - SUICIDAL IDEATION [None]
  - TENSION [None]
